FAERS Safety Report 6380332-0 (Version None)
Quarter: 2009Q3

REPORT INFORMATION
  Report Type: 
  Country: None (occurrence: None)
  Receive Date: 20090929
  Receipt Date: 20090918
  Transmission Date: 20100115
  Serious: Yes (Life-Threatening)
  Sender: FDA-Public Use
  Company Number: GB-JNJFOC-20090906283

PATIENT
  Age: 52 Year
  Sex: Male
  Weight: 82 kg

DRUGS (8)
  1. REMICADE [Suspect]
     Indication: ANKYLOSING SPONDYLITIS
     Route: 042
     Dates: start: 20070418, end: 20090415
  2. FENTANYL [Concomitant]
     Route: 061
  3. ADALAT [Concomitant]
     Route: 048
  4. AMITRIPTYLINE [Concomitant]
     Route: 048
  5. ATENOLOL [Concomitant]
     Route: 048
  6. CITALOPRAM [Concomitant]
     Route: 048
  7. LACTULOSE [Concomitant]
  8. LANSOPRAZOLE [Concomitant]
     Route: 048

REACTIONS (1)
  - NON-HODGKIN'S LYMPHOMA [None]
